FAERS Safety Report 9822433 (Version 2)
Quarter: 2014Q2

REPORT INFORMATION
  Report Type: Report from Study
  Country: JP (occurrence: JP)
  Receive Date: 20140116
  Receipt Date: 20140523
  Transmission Date: 20141212
  Serious: Yes (Death)
  Sender: FDA-Public Use
  Company Number: JP-009507513-1401JPN003735

PATIENT
  Age: 85 Year
  Sex: Male
  Weight: 51 kg

DRUGS (6)
  1. CANCIDAS FOR INTRAVENOUS DRIP INFUSION 50MG [Suspect]
     Indication: BRONCHOPULMONARY ASPERGILLOSIS
     Dosage: 50 MG, QD
     Route: 041
     Dates: start: 20130817, end: 20130820
  2. CANCIDAS FOR INTRAVENOUS DRIP INFUSION 70MG [Suspect]
     Indication: BRONCHOPULMONARY ASPERGILLOSIS
     Dosage: 70 MG, QD
     Route: 041
     Dates: start: 20130816, end: 20130816
  3. ELASPOL [Concomitant]
     Indication: PNEUMONIA ASPIRATION
     Dosage: 200 MG, QD
     Route: 051
     Dates: start: 20130805, end: 20130818
  4. VANCOMYCIN HYDROCHLORIDE [Concomitant]
     Indication: PNEUMONIA ASPIRATION
     Dosage: 1 G, QD
     Route: 051
     Dates: start: 20130805, end: 20130814
  5. NAFAMOSTAT MESYLATE [Concomitant]
     Indication: RENAL FAILURE ACUTE
     Dosage: 200 MG, QD
     Route: 051
     Dates: start: 20130811, end: 20130821
  6. SOL MELCORT [Concomitant]
     Indication: ACUTE RESPIRATORY FAILURE
     Dosage: UNK
     Route: 051
     Dates: start: 20130820, end: 20130821

REACTIONS (3)
  - Acute respiratory distress syndrome [Fatal]
  - White blood cell count increased [Fatal]
  - Hepatic function abnormal [Fatal]
